FAERS Safety Report 8994936 (Version 1)
Quarter: 2012Q4

REPORT INFORMATION
  Report Type: Spontaneous
  Country: US (occurrence: None)
  Receive Date: 20121228
  Receipt Date: 20121228
  Transmission Date: 20130627
  Serious: Yes (Life-Threatening)
  Sender: FDA-Public Use
  Company Number: None

PATIENT
  Age: 42 Year
  Sex: Male
  Weight: 110 kg

DRUGS (2)
  1. DEXMEDETOMIDINE HYDROCHLORIDE [Suspect]
     Indication: SEDATION
     Dosage: 0.4-0.7 mcg/kg/hr Continuous infusion IV Drip
     Route: 041
     Dates: start: 20121220, end: 20121220
  2. DEXMEDETOMIDINE HYDROCHLORIDE [Suspect]

REACTIONS (2)
  - Bradycardia [None]
  - Cardiac arrest [None]
